FAERS Safety Report 7224264-4 (Version None)
Quarter: 2011Q1

REPORT INFORMATION
  Report Type: 
  Country: None (occurrence: None)
  Receive Date: 20110105
  Receipt Date: 20101220
  Transmission Date: 20110831
  Serious: Yes (Hospitalization, Other)
  Sender: FDA-Public Use
  Company Number: 2010P1003590

PATIENT
  Age: 85 Year
  Sex: Male

DRUGS (9)
  1. FENTANYL [Suspect]
     Indication: MUSCULOSKELETAL CHEST PAIN
     Dosage: TDER, 150 MCG/HR; Q72H; TDER
     Route: 062
  2. FLOMAX [Concomitant]
  3. OXYCODONE [Concomitant]
  4. RANITIDINE [Concomitant]
  5. SENNA [Concomitant]
  6. COLACE [Concomitant]
  7. DILTIAZEM [Suspect]
     Indication: SUPRAVENTRICULAR TACHYCARDIA
  8. FENTANYL [Suspect]
     Indication: MUSCULOSKELETAL CHEST PAIN
     Dosage: 75 MCG/HR; ; IV, 25 MCG/HR; ; IV
     Route: 042
  9. PREVACID [Concomitant]

REACTIONS (18)
  - EXPRESSIVE LANGUAGE DISORDER [None]
  - PNEUMONIA [None]
  - SUPRAVENTRICULAR TACHYCARDIA [None]
  - MIOSIS [None]
  - ELECTROCARDIOGRAM QT PROLONGED [None]
  - DEHYDRATION [None]
  - SOMNOLENCE [None]
  - CONFUSIONAL STATE [None]
  - DRUG INTERACTION [None]
  - URINARY TRACT INFECTION [None]
  - CLOSTRIDIUM DIFFICILE COLITIS [None]
  - HAEMOGLOBIN DECREASED [None]
  - PERSECUTORY DELUSION [None]
  - BEDRIDDEN [None]
  - DELIRIUM [None]
  - AGITATION [None]
  - AGGRESSION [None]
  - HALLUCINATION [None]
